FAERS Safety Report 5492763-1 (Version None)
Quarter: 2007Q4

REPORT INFORMATION
  Report Type: 
  Country: None (occurrence: None)
  Receive Date: 20071023
  Receipt Date: 20071016
  Transmission Date: 20080405
  Serious: Yes (Other)
  Sender: FDA-Public Use
  Company Number: PHEH2007US13516

PATIENT
  Sex: Female

DRUGS (5)
  1. LOPRESSOR [Suspect]
     Indication: HYPERTENSION
     Dosage: 50MG BID
  2. ENALAPRIL MALEATE [Suspect]
     Indication: HYPERTENSION
  3. NIFEDIPINE [Suspect]
     Indication: HYPERTENSION
  4. VASOTEC [Suspect]
     Indication: HYPERTENSION
  5. LIPITOR [Suspect]
     Dates: end: 20050101

REACTIONS (3)
  - CARDIAC OPERATION [None]
  - MYOCARDIAL INFARCTION [None]
  - VASCULAR GRAFT [None]
